FAERS Safety Report 7072850-7 (Version None)
Quarter: 2010Q4

REPORT INFORMATION
  Report Type: 
  Country: None (occurrence: None)
  Receive Date: 20101029
  Receipt Date: 20100405
  Transmission Date: 20110411
  Serious: No
  Sender: FDA-Public Use
  Company Number: A0851236A

PATIENT
  Age: 34 Year
  Sex: Female
  Weight: 75 kg

DRUGS (1)
  1. ADVAIR DISKUS 100/50 [Suspect]
     Indication: ASTHMA
     Route: 055
     Dates: start: 20000101, end: 20100301

REACTIONS (1)
  - STOMATITIS [None]
